FAERS Safety Report 5768179-7 (Version None)
Quarter: 2008Q2

REPORT INFORMATION
  Report Type: 
  Country: None (occurrence: None)
  Receive Date: 20080609
  Receipt Date: 20080522
  Transmission Date: 20081010
  Serious: Yes (Hospitalization)
  Sender: FDA-Public Use
  Company Number: 2008BI011606

PATIENT
  Age: 39 Year
  Sex: Female
  Weight: 110 kg

DRUGS (1)
  1. AVONEX [Suspect]
     Indication: MULTIPLE SCLEROSIS
     Dosage: 30 UG;QW;IM
     Route: 042

REACTIONS (8)
  - IMMOBILE [None]
  - INTESTINAL OBSTRUCTION [None]
  - NAUSEA [None]
  - PERITONITIS [None]
  - SMALL INTESTINAL PERFORATION [None]
  - SMALL INTESTINE GANGRENE [None]
  - UMBILICAL HERNIA [None]
  - VOMITING [None]
